FAERS Safety Report 15184059 (Version 1)
Quarter: 2018Q3

REPORT INFORMATION
  Report Type: Report from Study
  Country: DE (occurrence: DE)
  Receive Date: 20180723
  Receipt Date: 20180723
  Transmission Date: 20181010
  Serious: Yes (Other)
  Sender: FDA-Public Use
  Company Number: DE-PFIZER INC-2018290015

PATIENT
  Age: 50 Year
  Sex: Female
  Weight: 68 kg

DRUGS (27)
  1. PACLITAXEL. [Suspect]
     Active Substance: PACLITAXEL
     Dosage: 160 MG, UNK
     Route: 042
     Dates: start: 20150319
  2. PACLITAXEL. [Suspect]
     Active Substance: PACLITAXEL
     Dosage: 160 MG, UNK
     Route: 042
     Dates: start: 20150507
  3. PACLITAXEL. [Suspect]
     Active Substance: PACLITAXEL
     Dosage: 160 MG, UNK
     Route: 042
     Dates: start: 20150611
  4. PACLITAXEL. [Suspect]
     Active Substance: PACLITAXEL
     Dosage: 160 MG, UNK
     Route: 042
     Dates: start: 20150625
  5. BEVACIZUMAB. [Suspect]
     Active Substance: BEVACIZUMAB
     Indication: BREAST CANCER
     Dosage: 680 MG, UNK
     Route: 042
     Dates: start: 20150409
  6. ACC [Concomitant]
     Active Substance: ACETYLCYSTEINE
     Indication: COUGH
     Dosage: 600 MG, UNK
     Route: 048
     Dates: start: 20150316, end: 20150319
  7. PARACODEINE [Concomitant]
     Indication: COUGH
     Dosage: UNK
     Route: 065
  8. IBUPROFEN. [Concomitant]
     Active Substance: IBUPROFEN
     Dosage: 1600 MG, 1X/DAY
     Route: 048
     Dates: start: 20150611
  9. PACLITAXEL. [Suspect]
     Active Substance: PACLITAXEL
     Dosage: 160 MG, UNK
     Route: 042
     Dates: start: 20150416
  10. PACLITAXEL. [Suspect]
     Active Substance: PACLITAXEL
     Dosage: 160 MG, UNK
     Route: 042
     Dates: start: 20150515
  11. CIPRO [Concomitant]
     Active Substance: CIPROFLOXACIN HYDROCHLORIDE
     Indication: COUGH
     Dosage: 1000 MG, 1X/DAY
     Route: 048
     Dates: start: 20150402, end: 20150406
  12. CIPRO [Concomitant]
     Active Substance: CIPROFLOXACIN HYDROCHLORIDE
     Indication: PYREXIA
     Dosage: 1000 MG, 1X/DAY
     Route: 048
     Dates: start: 20150528, end: 20150601
  13. PARACODEINE [Concomitant]
     Dosage: 402 MG, 1X/DAY
     Route: 048
     Dates: start: 20150528, end: 20150618
  14. LEVOFLOXACIN. [Concomitant]
     Active Substance: LEVOFLOXACIN
     Dosage: 500 MG, UNK
     Route: 048
     Dates: start: 20150825, end: 20150901
  15. PACLITAXEL. [Suspect]
     Active Substance: PACLITAXEL
     Dosage: 160 MG, UNK
     Route: 042
     Dates: start: 20150528
  16. PACLITAXEL. [Suspect]
     Active Substance: PACLITAXEL
     Dosage: 160 MG, UNK
     Route: 042
     Dates: start: 20150618
  17. PACLITAXEL. [Suspect]
     Active Substance: PACLITAXEL
     Dosage: 160 MG, UNK
     Route: 042
     Dates: start: 20150326
  18. IBUPROFEN. [Concomitant]
     Active Substance: IBUPROFEN
     Indication: BACK PAIN
     Dosage: 1800 MG, 1X/DAY
     Route: 048
     Dates: start: 20150319
  19. PACLITAXEL. [Suspect]
     Active Substance: PACLITAXEL
     Dosage: 160 MG, UNK
     Route: 042
     Dates: start: 20150424
  20. CAPECITABINE. [Suspect]
     Active Substance: CAPECITABINE
     Indication: BREAST CANCER
     Dosage: 3000 MG, UNK
     Route: 048
     Dates: start: 20150716, end: 20150729
  21. DICLAC [Concomitant]
     Active Substance: DICLOFENAC
     Indication: PAIN
     Dosage: 1% DOSE
     Route: 065
     Dates: start: 20151108, end: 20151119
  22. PACLITAXEL. [Suspect]
     Active Substance: PACLITAXEL
     Indication: BREAST CANCER
     Dosage: 160 MG, UNK
     Route: 042
     Dates: start: 20150312
  23. PACLITAXEL. [Suspect]
     Active Substance: PACLITAXEL
     Dosage: 160 MG, UNK
     Route: 042
     Dates: start: 20150409
  24. NOVAMINSULFON [Concomitant]
     Active Substance: METAMIZOLE
     Indication: PAIN
     Dosage: 1500 MG, 1X/DAY
     Route: 048
     Dates: start: 20150825
  25. BEVACIZUMAB. [Suspect]
     Active Substance: BEVACIZUMAB
     Dosage: 1000 MG, EVERY 3 WEEKS
     Route: 042
     Dates: start: 20151119
  26. CAPECITABINE. [Suspect]
     Active Substance: CAPECITABINE
     Dosage: 2500 MG, UNK
     Route: 048
     Dates: start: 20151119, end: 20151202
  27. CIPRO [Concomitant]
     Active Substance: CIPROFLOXACIN HYDROCHLORIDE
     Dosage: 1000 MG, 1X/DAY
     Route: 048
     Dates: start: 20150614, end: 20150618

REACTIONS (7)
  - Abdominal pain upper [Recovered/Resolved]
  - Fatigue [Unknown]
  - Hypothyroidism [Unknown]
  - Thrombosis [Recovered/Resolved]
  - Dyspnoea [Unknown]
  - Alopecia [Unknown]
  - Chest discomfort [Recovered/Resolved]

NARRATIVE: CASE EVENT DATE: 20150416
